FAERS Safety Report 9538825 (Version 1)
Quarter: 2013Q2

REPORT INFORMATION
  Report Type: Spontaneous
  Country: US (occurrence: None)
  Receive Date: 20130517
  Receipt Date: 20130517
  Transmission Date: 20140414
  Serious: No
  Sender: FDA-Public Use
  Company Number: 1000043560

PATIENT
  Age: 60 Year
  Sex: Female

DRUGS (3)
  1. VIIBRYD (VILAZODONE HYDROCHLORIDE) (10 MILLIGRAM, TABLETS) [Suspect]
     Indication: DEPRESSION
     Route: 048
     Dates: start: 20120304, end: 20130311
  2. VIIBRYD (VILAZODONE HYDROCHLORIDE) (10 MILLIGRAM, TABLETS) [Suspect]
     Indication: ANXIETY
     Route: 048
     Dates: start: 20120304, end: 20130311
  3. ATORVASTATIN (ATORVASTATIN) [Suspect]
     Indication: BLOOD CHOLESTEROL INCREASED

REACTIONS (4)
  - Pruritus [None]
  - Muscle spasms [None]
  - Abnormal dreams [None]
  - Middle insomnia [None]
